FAERS Safety Report 23650119 (Version 3)
Quarter: 2024Q3

REPORT INFORMATION
  Report Type: Report from Study
  Country: CO (occurrence: CO)
  Receive Date: 20240319
  Receipt Date: 20240724
  Transmission Date: 20241017
  Serious: Yes (Life-Threatening, Hospitalization, Other)
  Sender: ABBVIE
  Company Number: CO-ABBVIE-5683895

PATIENT
  Sex: Female
  Weight: 76 kg

DRUGS (2)
  1. SKYRIZI [Suspect]
     Active Substance: RISANKIZUMAB-RZAA
     Indication: Psoriasis
     Dosage: FORM STRENGTH: 150 MILLIGRAM
     Route: 058
     Dates: start: 20221122, end: 20231220
  2. PIPERACILLIN AND TAZOBACTAM [Concomitant]
     Active Substance: PIPERACILLIN SODIUM\TAZOBACTAM SODIUM
     Indication: Urinary tract infection
     Route: 042
     Dates: start: 202403

REACTIONS (9)
  - Urinary tract infection [Not Recovered/Not Resolved]
  - Renal failure [Not Recovered/Not Resolved]
  - Hypoacusis [Not Recovered/Not Resolved]
  - Abdominal pain [Unknown]
  - Pneumonitis [Unknown]
  - Hypoxia [Unknown]
  - Fluid retention [Unknown]
  - Loss of consciousness [Recovering/Resolving]
  - Amnesia [Recovering/Resolving]

NARRATIVE: CASE EVENT DATE: 20240101
